FAERS Safety Report 10287637 (Version 2)
Quarter: 2014Q3

REPORT INFORMATION
  Report Type: Spontaneous
  Country: US (occurrence: None)
  Receive Date: 20140707
  Receipt Date: 20140724
  Transmission Date: 20150326
  Serious: Yes (Congenital Anomaly, Other)
  Sender: FDA-Public Use
  Company Number: 2014AP003544

PATIENT
  Age: 0 Day
  Sex: Female

DRUGS (1)
  1. PAXIL [Suspect]
     Active Substance: PAROXETINE HYDROCHLORIDE
     Indication: DEPRESSION

REACTIONS (15)
  - Craniosynostosis [None]
  - Gastric fistula [None]
  - Neurogenic bladder [None]
  - Plagiocephaly [None]
  - Auditory neuropathy spectrum disorder [None]
  - Spina bifida [None]
  - Muscular weakness [None]
  - Arnold-Chiari malformation [None]
  - Foetal exposure during pregnancy [None]
  - Syringomyelia [None]
  - Hypermetropia [None]
  - Hydrocephalus [None]
  - Scoliosis [None]
  - Astigmatism [None]
  - Meningomyelocele [None]

NARRATIVE: CASE EVENT DATE: 20030805
